FAERS Safety Report 23172533 (Version 3)
Quarter: 2024Q1

REPORT INFORMATION
  Report Type: Report from Study
  Country: US (occurrence: US)
  Receive Date: 20231110
  Receipt Date: 20240317
  Transmission Date: 20240410
  Serious: Yes (Other)
  Sender: FDA-Public Use
  Company Number: US-ABBVIE-5487449

PATIENT
  Sex: Female

DRUGS (1)
  1. RINVOQ [Suspect]
     Active Substance: UPADACITINIB
     Indication: Rheumatoid arthritis
     Route: 048
     Dates: start: 20210302

REACTIONS (4)
  - Nephrolithiasis [Not Recovered/Not Resolved]
  - Spinal operation [Recovering/Resolving]
  - Intervertebral disc degeneration [Unknown]
  - Intervertebral disc protrusion [Not Recovered/Not Resolved]
